FAERS Safety Report 6933509-7 (Version None)
Quarter: 2010Q3

REPORT INFORMATION
  Report Type: 
  Country: None (occurrence: None)
  Receive Date: 20100820
  Receipt Date: 20100809
  Transmission Date: 20110219
  Serious: Yes (Other)
  Sender: FDA-Public Use
  Company Number: CA-PFIZER INC-2010099891

PATIENT
  Age: 39 Year
  Sex: Female

DRUGS (5)
  1. LYRICA [Suspect]
     Dosage: 125 MG, 1X/DAY
  2. DEPO-PROVERA [Concomitant]
     Dosage: UNK
  3. DURAGESIC-100 [Concomitant]
     Dosage: UNK
     Route: 062
  4. VENTOLIN [Concomitant]
     Dosage: UNK
  5. FLOVENT [Concomitant]
     Dosage: UNK

REACTIONS (2)
  - ROAD TRAFFIC ACCIDENT [None]
  - SUDDEN ONSET OF SLEEP [None]
